FAERS Safety Report 4551978-7 (Version None)
Quarter: 2005Q1

REPORT INFORMATION
  Report Type: 
  Country: None (occurrence: None)
  Receive Date: 20050112
  Receipt Date: 20050104
  Transmission Date: 20050727
  Serious: Yes (Hospitalization)
  Sender: FDA-Public Use
  Company Number: 9603

PATIENT
  Age: 66 Year
  Sex: Male

DRUGS (7)
  1. CARBOPLATIN [Suspect]
     Indication: SMALL CELL LUNG CANCER STAGE UNSPECIFIED
     Dosage: 1130 MG, IV
     Route: 042
     Dates: start: 20041117, end: 20041117
  2. ETOPOSIDE [Suspect]
     Indication: SMALL CELL LUNG CANCER STAGE UNSPECIFIED
     Dosage: 230 MG, IV
     Route: 042
     Dates: start: 20041117, end: 20041117
  3. TOLTERODINE [Concomitant]
  4. TEMAZEPAM [Concomitant]
  5. OMEPRAZOLE [Concomitant]
  6. FENTANYL [Concomitant]
  7. MACROGOL/SODIUM CHLORIDE/POTASSIUM CHLORIDE/SODIUM BICARBONATE [Concomitant]

REACTIONS (1)
  - NEUTROPENIC SEPSIS [None]
